FAERS Safety Report 6761324-6 (Version None)
Quarter: 2010Q2

REPORT INFORMATION
  Report Type: 
  Country: None (occurrence: None)
  Receive Date: 20100608
  Receipt Date: 20100603
  Transmission Date: 20101027
  Serious: Yes (Hospitalization)
  Sender: FDA-Public Use
  Company Number: US-GILEAD-2010-0029479

PATIENT
  Sex: Male

DRUGS (2)
  1. LETAIRIS [Suspect]
     Indication: PULMONARY ARTERIAL HYPERTENSION
     Route: 048
     Dates: start: 20090416, end: 20100422
  2. REVATIO [Concomitant]
     Indication: PULMONARY HYPERTENSION

REACTIONS (2)
  - HEPATIC CIRRHOSIS [None]
  - LIVER TRANSPLANT [None]
